FAERS Safety Report 9547032 (Version 1)
Quarter: 2013Q2

REPORT INFORMATION
  Report Type: Spontaneous
  Country: US (occurrence: None)
  Receive Date: 20130606
  Receipt Date: 20130606
  Transmission Date: 20140414
  Serious: No
  Sender: FDA-Public Use
  Company Number: 2013PROUSA02440

PATIENT
  Age: 87 Year
  Sex: Male
  Weight: 87.1 kg

DRUGS (9)
  1. PROVENGE (SIPULEUCEL-T) SUSPENSION, 250ML [Suspect]
     Indication: PROSTATE CANCER METASTATIC
     Dosage: 250 ML, SINKGLE, INTRAVENOUS
     Route: 042
     Dates: start: 20121115, end: 20121115
  2. ASPIRIN (ACEETYLSALICYLIC ACID) [Concomitant]
  3. CALCIUM (CALCIUM CARBONATE) [Concomitant]
  4. FIBER (POLYCARBOPHIL CALCIUM) [Concomitant]
  5. FINASTERIDE (FINASTERIDE) [Concomitant]
  6. GABAPENTIN (GABAPENTIN) [Concomitant]
  7. LISINOPRIL+HIDROCLOROTIAZIDA (HYDROCHLOROTHIAZIDE, LISINOPRIL) [Concomitant]
  8. PROBIOTIC (BIFIDOBACTERIIUM INFANTIS, LACTOBACILLUS ACIDOPHILUS) [Concomitant]
  9. XGEVA (DENOSUMAB [Concomitant]

REACTIONS (2)
  - Catheter site pruritus [None]
  - Device related infection [None]
